FAERS Safety Report 12218128 (Version 1)
Quarter: 2016Q1

REPORT INFORMATION
  Report Type: Spontaneous
  Country: US (occurrence: US)
  Receive Date: 20160329
  Receipt Date: 20160329
  Transmission Date: 20160526
  Serious: No
  Sender: FDA-Public Use
  Company Number: US-BAUSCH-BL-2015-031121

PATIENT
  Sex: Male
  Weight: 92.16 kg

DRUGS (4)
  1. JUBLIA [Suspect]
     Active Substance: EFINACONAZOLE
     Indication: PARONYCHIA
     Dosage: ONE APPLICATION ONCE EVERY 24 HOURS
     Route: 061
     Dates: start: 201505, end: 2015
  2. KEFLEX [Concomitant]
     Active Substance: CEPHALEXIN
     Indication: STAPHYLOCOCCAL INFECTION
  3. ASPIRIN. [Concomitant]
     Active Substance: ASPIRIN
     Indication: PRODUCT USED FOR UNKNOWN INDICATION
  4. ATENOLOL. [Concomitant]
     Active Substance: ATENOLOL
     Indication: PRODUCT USED FOR UNKNOWN INDICATION

REACTIONS (9)
  - Skin haemorrhage [Recovering/Resolving]
  - Pruritus [Recovering/Resolving]
  - Skin exfoliation [Recovering/Resolving]
  - Pain [Recovering/Resolving]
  - Rash generalised [Recovering/Resolving]
  - Ingrowing nail [Recovering/Resolving]
  - Gait disturbance [Recovering/Resolving]
  - Burning sensation [Recovering/Resolving]
  - Product quality issue [Unknown]
